FAERS Safety Report 14318977 (Version 1)
Quarter: 2017Q4

REPORT INFORMATION
  Report Type: Report from Study
  Country: US (occurrence: US)
  Receive Date: 20171222
  Receipt Date: 20171222
  Transmission Date: 20180321
  Serious: Yes (Hospitalization)
  Sender: FDA-Public Use
  Company Number: US-JNJFOC-20170709919

PATIENT
  Age: 68 Year
  Sex: Male

DRUGS (7)
  1. IMBRUVICA [Suspect]
     Active Substance: IBRUTINIB
     Indication: CHRONIC LYMPHOCYTIC LEUKAEMIA
     Route: 048
     Dates: start: 20170316
  2. NORVASC [Concomitant]
     Active Substance: AMLODIPINE BESYLATE
  3. FONDAPARINUX [Concomitant]
     Active Substance: FONDAPARINUX
  4. LOVENOX [Concomitant]
     Active Substance: ENOXAPARIN SODIUM
  5. TOPROL XL [Concomitant]
     Active Substance: METOPROLOL SUCCINATE
  6. ALLOPURINOL. [Concomitant]
     Active Substance: ALLOPURINOL
  7. POTASSIUM [Concomitant]
     Active Substance: POTASSIUM

REACTIONS (4)
  - Night sweats [Unknown]
  - Hallucinations, mixed [Unknown]
  - Pulmonary thrombosis [Unknown]
  - Abnormal behaviour [Unknown]

NARRATIVE: CASE EVENT DATE: 201712
